FAERS Safety Report 7052684-X (Version None)
Quarter: 2010Q4

REPORT INFORMATION
  Report Type: 
  Country: None (occurrence: None)
  Receive Date: 20101019
  Receipt Date: 20101013
  Transmission Date: 20110411
  Serious: Yes (Other)
  Sender: FDA-Public Use
  Company Number: US-PFIZER INC-2007090786

PATIENT
  Sex: Female
  Weight: 79.4 kg

DRUGS (12)
  1. CHANTIX [Suspect]
     Dosage: 0.5 MG, 1X/DAY
     Dates: start: 20071022
  2. CHANTIX [Suspect]
     Dosage: UNK
     Dates: start: 20090101, end: 20100501
  3. CHANTIX [Suspect]
     Dosage: UNK
     Dates: start: 20101001
  4. SPIRIVA [Concomitant]
  5. ACETYLSALICYLIC ACID SRT [Concomitant]
  6. PREDNISONE [Concomitant]
  7. POTASSIUM [Concomitant]
  8. TRAMADOL HCL [Concomitant]
     Indication: PAIN
  9. NEXIUM [Concomitant]
  10. FUROSEMIDE [Concomitant]
  11. SYNTHROID [Concomitant]
     Indication: THYROID DISORDER
  12. ALBUTEROL [Concomitant]

REACTIONS (7)
  - BLOOD CHOLESTEROL INCREASED [None]
  - CHRONIC OBSTRUCTIVE PULMONARY DISEASE [None]
  - HOT FLUSH [None]
  - HYPOAESTHESIA [None]
  - PAIN [None]
  - PAIN IN EXTREMITY [None]
  - STRESS [None]
